FAERS Safety Report 21308168 (Version 1)
Quarter: 2022Q3

REPORT INFORMATION
  Report Type: Spontaneous
  Country: US (occurrence: US)
  Receive Date: 20220908
  Receipt Date: 20220908
  Transmission Date: 20221027
  Serious: Yes (Other)
  Sender: FDA-Public Use
  Company Number: US-TEVA-2022-US-2071371

PATIENT
  Sex: Female

DRUGS (6)
  1. OXYCODONE [Suspect]
     Active Substance: OXYCODONE
     Indication: Pain
     Route: 065
  2. BUPRENORPHINE [Suspect]
     Active Substance: BUPRENORPHINE
     Indication: Pain
     Route: 065
  3. HEROIN [Suspect]
     Active Substance: DIAMORPHINE
     Indication: Pain
     Route: 065
  4. CANNABIS SATIVA SUBSP. INDICA TOP [Suspect]
     Active Substance: CANNABIS SATIVA SUBSP. INDICA TOP
     Indication: Pain
     Route: 065
  5. XANAX [Suspect]
     Active Substance: ALPRAZOLAM
     Indication: Pain
     Route: 065
  6. COCAINE [Suspect]
     Active Substance: COCAINE
     Indication: Pain
     Route: 065

REACTIONS (3)
  - Drug abuse [Unknown]
  - Drug dependence [Unknown]
  - Drug diversion [Unknown]
